FAERS Safety Report 9559402 (Version 3)
Quarter: 2014Q1

REPORT INFORMATION
  Report Type: Spontaneous
  Country: US (occurrence: None)
  Receive Date: 20130924
  Receipt Date: 20140328
  Transmission Date: 20141002
  Serious: Yes (Congenital Anomaly)
  Sender: FDA-Public Use
  Company Number: 13US006708

PATIENT
  Age: 1 Day
  Sex: Male

DRUGS (2)
  1. RIBAVIRIN [Suspect]
     Indication: HEPATITIS C
     Route: 048
     Dates: start: 20111020, end: 20111115
  2. FOLATE [Concomitant]

REACTIONS (3)
  - Maternal drugs affecting foetus [None]
  - Deafness congenital [None]
  - Low birth weight baby [None]
